FAERS Safety Report 9162734 (Version 3)
Quarter: 2013Q3

REPORT INFORMATION
  Report Type: Spontaneous
  Country: FR (occurrence: FR)
  Receive Date: 20130314
  Receipt Date: 20130815
  Transmission Date: 20140515
  Serious: Yes (Hospitalization, Other)
  Sender: FDA-Public Use
  Company Number: FR-AMGEN-FRASP2013015352

PATIENT
  Age: 53 Year
  Sex: Male
  Weight: 104.7 kg

DRUGS (4)
  1. XGEVA [Suspect]
     Indication: METASTASES TO BONE
     Dosage: 120 MG, UNK
     Route: 058
     Dates: start: 20130222, end: 20130222
  2. XGEVA [Suspect]
     Indication: PROSTATE CANCER METASTATIC
  3. CASODEX W/ZOLADEX [Concomitant]
  4. AVLOCARDYL                         /00030001/ [Concomitant]

REACTIONS (6)
  - Electrocardiogram QT prolonged [Recovered/Resolved]
  - Chest pain [Recovered/Resolved]
  - Paraesthesia [Recovered/Resolved]
  - Hypocalcaemia [Recovered/Resolved]
  - Hypoaesthesia [Unknown]
  - Muscle spasms [Unknown]
